FAERS Safety Report 8097815-8 (Version None)
Quarter: 2012Q1

REPORT INFORMATION
  Report Type: 
  Country: None (occurrence: None)
  Receive Date: 20120128
  Receipt Date: 20110805
  Transmission Date: 20120608
  Serious: No
  Sender: FDA-Public Use
  Company Number: US-ABBOTT-11P-163-0844414-00

PATIENT
  Sex: Female

DRUGS (12)
  1. FOLIC ACID [Concomitant]
     Indication: VITAMIN SUPPLEMENTATION
  2. ASPIRIN [Concomitant]
     Indication: ANTICOAGULANT THERAPY
  3. CALCIUM [Concomitant]
     Indication: MINERAL SUPPLEMENTATION
     Dosage: DOES NOT REMEMBER DOSE
  4. HUMIRA [Suspect]
     Indication: RHEUMATOID ARTHRITIS
     Dates: start: 20110706
  5. VITAMIN TAB [Concomitant]
     Indication: PRODUCT USED FOR UNKNOWN INDICATION
     Dosage: EVERY MONDAY
  6. PREDNISONE TAB [Concomitant]
     Indication: SARCOIDOSIS
  7. ENALAPRIL [Concomitant]
     Indication: HYPERTENSION
  8. FUROSEMIDE [Concomitant]
     Indication: FLUID RETENTION
  9. POTASSIUM [Concomitant]
     Indication: MINERAL SUPPLEMENTATION
  10. NORCO [Concomitant]
     Indication: PAIN
     Dosage: EVERY 6 HOURS AS NEEDED
  11. ARAVA [Concomitant]
     Indication: RHEUMATOID ARTHRITIS
  12. COMBIVENT [Concomitant]
     Indication: PRODUCT USED FOR UNKNOWN INDICATION
     Route: 055

REACTIONS (2)
  - DRUG INEFFECTIVE [None]
  - MUSCULAR WEAKNESS [None]
